FAERS Safety Report 9523899 (Version 2)
Quarter: 2013Q3

REPORT INFORMATION
  Report Type: Spontaneous
  Country: US (occurrence: None)
  Receive Date: 20130912
  Receipt Date: 20130924
  Transmission Date: 20140515
  Serious: Yes (Other)
  Sender: FDA-Public Use
  Company Number: 1881776

PATIENT
  Age: 55 Year
  Sex: Female
  Weight: 70.3 kg

DRUGS (13)
  1. LIDOCAINE HCL + EPHENEPHRINE [Suspect]
     Indication: TOOTH DISORDER
     Dates: start: 20130725, end: 20130725
  2. DALFAMPRIDINE [Suspect]
     Indication: GAIT DISTURBANCE
     Route: 048
  3. DALFAMPRIDINE [Suspect]
     Indication: MULTIPLE SCLEROSIS
     Route: 048
  4. DALFAMPRIDINE [Suspect]
     Indication: MULTIPLE SCLEROSIS
     Route: 048
  5. VENLAFAXINE HYDROCHLORIDE [Concomitant]
  6. TRIMETHOPRIM [Concomitant]
  7. BACLOFEN [Concomitant]
  8. HERBAL OIL NOS [Concomitant]
  9. MACROGOL [Concomitant]
  10. FLAXSEED OIL [Concomitant]
  11. MULTIVITAMIN [Concomitant]
  12. CRANBERRY [Concomitant]
  13. VENLAFAXINE HYDROCHLORIDE [Concomitant]

REACTIONS (3)
  - Suicidal ideation [None]
  - Stress [None]
  - Hypersensitivity [None]
